FAERS Safety Report 21297051 (Version 1)
Quarter: 2022Q3

REPORT INFORMATION
  Report Type: Spontaneous
  Country: FR (occurrence: FR)
  Receive Date: 20220906
  Receipt Date: 20220906
  Transmission Date: 20221027
  Serious: Yes (Hospitalization, Other)
  Sender: FDA-Public Use
  Company Number: FR-AUROBINDO-AUR-APL-2022-035599

PATIENT
  Age: 52 Year
  Sex: Male
  Weight: 65.5 kg

DRUGS (8)
  1. BISOPROLOL [Suspect]
     Active Substance: BISOPROLOL
     Indication: Ischaemic heart disease prophylaxis
     Dosage: 2.25 MILLIGRAM, ONCE A DAY
     Route: 048
     Dates: start: 20220806
  2. ACETAMINOPHEN [Suspect]
     Active Substance: ACETAMINOPHEN
     Indication: Pain
     Dosage: 1 DOSAGE FORM
     Route: 048
     Dates: start: 20220806
  3. EPLERENONE [Suspect]
     Active Substance: EPLERENONE
     Indication: Thrombosis prophylaxis
     Dosage: 25 MILLIGRAM, ONCE A DAY
     Route: 048
     Dates: start: 20220806
  4. RAMIPRIL [Suspect]
     Active Substance: RAMIPRIL
     Indication: Ischaemic heart disease prophylaxis
     Dosage: 1.25 MILLIGRAM, ONCE A DAY
     Route: 048
     Dates: start: 20220806, end: 20220816
  5. PRASUGREL [Suspect]
     Active Substance: PRASUGREL
     Indication: Thrombosis prophylaxis
     Dosage: 10 MILLIGRAM, ONCE A DAY
     Route: 048
     Dates: start: 20220806
  6. NITROGLYCERIN [Suspect]
     Active Substance: NITROGLYCERIN
     Indication: Angina pectoris
     Dosage: 1 DOSAGE FORM
     Route: 060
     Dates: start: 20220806
  7. ATORVASTATIN CALCIUM TRIHYDRATE\EZETIMIBE [Suspect]
     Active Substance: ATORVASTATIN CALCIUM TRIHYDRATE\EZETIMIBE
     Indication: Myocardial ischaemia
     Route: 048
     Dates: start: 20220806
  8. ASPIRIN [Suspect]
     Active Substance: ASPIRIN
     Indication: Myocardial ischaemia
     Dosage: 1 DOSAGE FORM, ONCE A DAY
     Route: 048
     Dates: start: 20220806

REACTIONS (1)
  - Angioedema [Recovered/Resolved]

NARRATIVE: CASE EVENT DATE: 20220816
